FAERS Safety Report 5399929-X (Version None)
Quarter: 2007Q3

REPORT INFORMATION
  Report Type: 
  Country: None (occurrence: None)
  Receive Date: 20070730
  Receipt Date: 20070725
  Transmission Date: 20080115
  Serious: Yes (Other)
  Sender: FDA-Public Use
  Company Number: US-BAYER-200710864BCC

PATIENT
  Sex: Female
  Weight: 93 kg

DRUGS (6)
  1. MILK OF MAGNESIA TAB [Suspect]
     Indication: DRUG USE FOR UNKNOWN INDICATION
     Dosage: UNIT DOSE: 15 ML
     Route: 048
  2. ARIMIDEX [Concomitant]
  3. LIPITOR [Concomitant]
  4. FUROSEMIDE [Concomitant]
  5. POTASSIUM CHLORIDE [Concomitant]
  6. FOSINOPRIL SODIUM [Concomitant]

REACTIONS (1)
  - HYPERTENSION [None]
